FAERS Safety Report 13536288 (Version 1)
Quarter: 2017Q2

REPORT INFORMATION
  Report Type: Spontaneous
  Country: US (occurrence: US)
  Receive Date: 20170511
  Receipt Date: 20170511
  Transmission Date: 20170830
  Serious: Yes (Other)
  Sender: FDA-Public Use
  Company Number: None

PATIENT
  Sex: Female
  Weight: 90.8 kg

DRUGS (1)
  1. ENBREL [Suspect]
     Active Substance: ETANERCEPT
     Indication: RHEUMATOID ARTHRITIS
     Route: 058
     Dates: start: 20160916

REACTIONS (8)
  - Sneezing [None]
  - Ocular hyperaemia [None]
  - Eye pruritus [None]
  - Nasal congestion [None]
  - Intraocular pressure increased [None]
  - Headache [None]
  - Rhinorrhoea [None]
  - Cough [None]
